FAERS Safety Report 8740197 (Version 2)
Quarter: 2012Q4

REPORT INFORMATION
  Report Type: 
  Country: CH (occurrence: CH)
  Receive Date: 20120823
  Receipt Date: 20120925
  Transmission Date: 20130627
  Serious: Yes (Hospitalization, Other)
  Sender: FDA-Public Use
  Company Number: CH-009507513-1208CHE008037

PATIENT
  Age: 54 Year
  Sex: Male

DRUGS (8)
  1. INEGY [Suspect]
     Dosage: UNK UNK, qd
     Route: 048
     Dates: end: 20120327
  2. ATORVASTATIN [Suspect]
     Dosage: 80 mg, qd
     Route: 048
  3. ASPIRIN CARDIO [Concomitant]
     Dosage: 100 mg, qd
     Route: 048
  4. EFIENT [Concomitant]
     Dosage: 10 mg, qd
     Route: 048
  5. PANTOZOL [Concomitant]
     Dosage: 40 mg, qd
  6. ALLOPURINOL [Concomitant]
     Dosage: 300 mg, qd
     Route: 048
  7. BILOL [Concomitant]
     Dosage: 2.5 mg, qd
     Route: 048
  8. CITALOPRAM [Suspect]
     Dosage: 40 mg, qd
     Route: 048

REACTIONS (12)
  - Ataxia [Recovered/Resolved]
  - Hepatic necrosis [Recovering/Resolving]
  - Rhabdomyolysis [Recovering/Resolving]
  - Dizziness [Recovered/Resolved]
  - Metabolic alkalosis [Recovered/Resolved]
  - Blood creatinine increased [Recovering/Resolving]
  - Muscular weakness [Recovering/Resolving]
  - Thrombocytopenia [Recovered/Resolved]
  - Hepatic enzyme increased [Recovering/Resolving]
  - Renal failure [Unknown]
  - Syncope [Unknown]
  - Crush syndrome [Unknown]
